FAERS Safety Report 13891002 (Version 1)
Quarter: 2017Q3

REPORT INFORMATION
  Report Type: Spontaneous
  Country: IT (occurrence: IT)
  Receive Date: 20170822
  Receipt Date: 20170822
  Transmission Date: 20171127
  Serious: Yes (Death)
  Sender: FDA-Public Use
  Company Number: IT-ACCORD-057263

PATIENT
  Age: 17 Year
  Sex: Male

DRUGS (1)
  1. TRAMADOL/TRAMADOL HYDROCHLORIDE [Suspect]
     Active Substance: TRAMADOL HYDROCHLORIDE

REACTIONS (4)
  - Overdose [Fatal]
  - Completed suicide [Fatal]
  - Pulmonary oedema [Fatal]
  - Respiratory depression [Fatal]
